FAERS Safety Report 8132632-1 (Version None)
Quarter: 2012Q1

REPORT INFORMATION
  Report Type: 
  Country: None (occurrence: None)
  Receive Date: 20120213
  Receipt Date: 20120208
  Transmission Date: 20120608
  Serious: Yes (Hospitalization)
  Sender: FDA-Public Use
  Company Number: US-GLAXOSMITHKLINE-A0965398A

PATIENT
  Age: 62 Year
  Sex: Male

DRUGS (1)
  1. FLOLAN [Suspect]
     Indication: PULMONARY HYPERTENSION
     Dosage: 20NGKM UNKNOWN
     Route: 065
     Dates: start: 20111110

REACTIONS (4)
  - HYPOTENSION [None]
  - DIZZINESS [None]
  - SYNCOPE [None]
  - INFECTION [None]
